FAERS Safety Report 17003600 (Version 1)
Quarter: 2019Q4

REPORT INFORMATION
  Report Type: Spontaneous
  Country: FR (occurrence: FR)
  Receive Date: 20191107
  Receipt Date: 20191107
  Transmission Date: 20200122
  Serious: Yes (Other)
  Sender: FDA-Public Use
  Company Number: FR-GLAXOSMITHKLINE-FR2019GSK202124

PATIENT
  Age: 39 Year
  Sex: Male

DRUGS (2)
  1. NICOTINE. [Suspect]
     Active Substance: NICOTINE
     Indication: SMOKING CESSATION THERAPY
     Dosage: 1 DF, QD (14 MG/24H) (1/DAY)
     Route: 062
     Dates: start: 20191007
  2. NICOPATCH [Suspect]
     Active Substance: NICOTINE
     Indication: SMOKING CESSATION THERAPY
     Dosage: UNK (14 MG/24 H) (1/DAY)
     Route: 062
     Dates: start: 20190206

REACTIONS (7)
  - Treatment noncompliance [Unknown]
  - Product quality issue [Unknown]
  - Nicotine dependence [Unknown]
  - Intentional overdose [Unknown]
  - Drug ineffective [Unknown]
  - Ill-defined disorder [Recovered/Resolved]
  - Intentional product misuse [Unknown]

NARRATIVE: CASE EVENT DATE: 20191007
